FAERS Safety Report 8086983-X (Version None)
Quarter: 2012Q1

REPORT INFORMATION
  Report Type: 
  Country: None (occurrence: None)
  Receive Date: 20120128
  Receipt Date: 20110519
  Transmission Date: 20120608
  Serious: No
  Sender: FDA-Public Use
  Company Number: US-ABBOTT-11P-163-0727435-00

PATIENT
  Age: 37 Year
  Sex: Female

DRUGS (3)
  1. HUMIRA [Suspect]
     Indication: PSORIATIC ARTHROPATHY
     Dates: start: 20101201, end: 20110404
  2. PREDNISONE TAB [Concomitant]
     Dosage: DAILY, DIRECTED TO TAPER DOSE DOWN
  3. KENALOG [Concomitant]

REACTIONS (2)
  - GAIT DISTURBANCE [None]
  - DRUG INEFFECTIVE [None]
